FAERS Safety Report 6233459-8 (Version None)
Quarter: 2009Q2

REPORT INFORMATION
  Report Type: 
  Country: None (occurrence: None)
  Receive Date: 20090616
  Receipt Date: 20090616
  Transmission Date: 20091009
  Serious: Yes (Other)
  Sender: FDA-Public Use
  Company Number: None

PATIENT
  Age: 39 Year
  Sex: Male
  Weight: 102.0593 kg

DRUGS (1)
  1. AMOX-CLAV 875MG TABLETS SANDOZ [Suspect]
     Indication: SINUSITIS
     Dosage: 1 TABLET 12HRS BUCCAL
     Route: 002
     Dates: start: 20090603, end: 20090613

REACTIONS (5)
  - AGGRESSION [None]
  - ANXIETY [None]
  - DEPRESSION [None]
  - DIZZINESS [None]
  - MEMORY IMPAIRMENT [None]
